FAERS Safety Report 14494622 (Version 2)
Quarter: 2018Q1

REPORT INFORMATION
  Report Type: Spontaneous
  Country: DE (occurrence: DE)
  Receive Date: 20180206
  Receipt Date: 20180306
  Transmission Date: 20180509
  Serious: Yes (Other)
  Sender: FDA-Public Use
  Company Number: DE-ALLERGAN-1805628US

PATIENT
  Age: 80 Year
  Sex: Female

DRUGS (7)
  1. HYLO-GEL [Concomitant]
  2. MEMANTINE HCL - BP [Suspect]
     Active Substance: MEMANTINE
     Indication: MACULAR DEGENERATION
     Dosage: 20 MG, QD
     Route: 048
     Dates: start: 201604
  3. CALCIMAGON-D3 [Concomitant]
     Active Substance: CALCIUM\CHOLECALCIFEROL
  4. LUMIGAN [Concomitant]
     Active Substance: BIMATOPROST
     Dosage: UNK, QD
  5. MEMANTINE ABZ [Concomitant]
     Indication: MACULAR DEGENERATION
     Dosage: 20 MG, QD
     Route: 048
     Dates: start: 2017
  6. ASS PROTECT [Concomitant]
  7. ATORVASTATIN [Concomitant]
     Active Substance: ATORVASTATIN

REACTIONS (2)
  - Ophthalmic vein thrombosis [Recovered/Resolved]
  - Off label use [Unknown]

NARRATIVE: CASE EVENT DATE: 201708
